FAERS Safety Report 21454348 (Version 1)
Quarter: 2022Q4

REPORT INFORMATION
  Report Type: Spontaneous
  Country: US (occurrence: None)
  Receive Date: 20221013
  Receipt Date: 20221013
  Transmission Date: 20230113
  Serious: Yes (Hospitalization)
  Sender: FDA-Public Use
  Company Number: None

PATIENT
  Age: 63 Year
  Sex: Male
  Weight: 98 kg

DRUGS (1)
  1. ALIMTA [Suspect]
     Active Substance: PEMETREXED DISODIUM
     Dates: end: 20220915

REACTIONS (12)
  - COVID-19 [None]
  - Hypoxia [None]
  - Dyspnoea [None]
  - Dizziness [None]
  - Productive cough [None]
  - Oedema peripheral [None]
  - Asthenia [None]
  - Anaemia [None]
  - Pneumonia [None]
  - Encephalopathy [None]
  - Urinary tract infection [None]
  - Agitation [None]

NARRATIVE: CASE EVENT DATE: 20221003
